FAERS Safety Report 8367669-0 (Version None)
Quarter: 2012Q2

REPORT INFORMATION
  Report Type: 
  Country: None (occurrence: None)
  Receive Date: 20120517
  Receipt Date: 20120510
  Transmission Date: 20120825
  Serious: Yes (Hospitalization)
  Sender: FDA-Public Use
  Company Number: US-GLAXOSMITHKLINE-A0785681A

PATIENT
  Age: 60 Year
  Sex: Male
  Weight: 90.9 kg

DRUGS (11)
  1. DIVALPROEX SODIUM [Concomitant]
  2. ASPIRIN [Concomitant]
  3. TRAZODONE HCL [Concomitant]
  4. IRBESARTAN [Concomitant]
  5. FELODIPINE [Concomitant]
  6. CITALOPRAM HYDROBROMIDE [Concomitant]
  7. ROSIGLITAZONE MALEATE [Suspect]
     Indication: TYPE 2 DIABETES MELLITUS
     Dosage: 4MG TWICE PER DAY
     Route: 048
     Dates: start: 20031001, end: 20071201
  8. OMEPRAZOLE [Concomitant]
  9. INSULIN [Concomitant]
  10. GLIPIZIDE [Concomitant]
  11. HYDROCHLOROTHIAZIDE [Concomitant]

REACTIONS (2)
  - CARDIAC FAILURE CONGESTIVE [None]
  - CORONARY ARTERY DISEASE [None]
